FAERS Safety Report 16571933 (Version 4)
Quarter: 2019Q3

REPORT INFORMATION
  Report Type: Spontaneous
  Country: FR (occurrence: FR)
  Receive Date: 20190715
  Receipt Date: 20190823
  Transmission Date: 20191004
  Serious: Yes (Hospitalization)
  Sender: FDA-Public Use
  Company Number: FR-009507513-1907FRA005244

PATIENT
  Age: 62 Year
  Sex: Male
  Weight: 105.5 kg

DRUGS (9)
  1. BISOCE [Concomitant]
     Active Substance: BISOPROLOL
     Dosage: UNK; FORMULATION: BREAKABLE COATED TABLET
  2. RAMIPRIL. [Concomitant]
     Active Substance: RAMIPRIL
     Dosage: 2,5 MILLIGRAM
  3. TAVANIC [Concomitant]
     Active Substance: LEVOFLOXACIN
     Dosage: UNK; FORMULATION: BREAKABLE COATED TABLET
  4. AZACTAM [Concomitant]
     Active Substance: AZTREONAM
     Dosage: UNK; FORMULATION:POWDER AND SOLUTION FOR PARENTERAL USE
  5. PREVISCAN [FLUINDIONE] [Suspect]
     Active Substance: FLUINDIONE
     Indication: THROMBOSIS PROPHYLAXIS
     Dosage: 20 MILLIGRAM, QD; FORMULATION: COATED TABLET
     Route: 048
     Dates: start: 20190128
  6. AMIKACINE MYLAN [Concomitant]
     Active Substance: AMIKACIN
     Dosage: UNK; FORMULATION: POWDER FOR SOLUTION FOR INJECTION IN BOTTLE
  7. CUBICIN [Suspect]
     Active Substance: DAPTOMYCIN
     Indication: ENDOCARDITIS
     Dosage: 1200 MILLIGRAM, QD; FORMULATION: POWDER FOR CONCENTRATED FOR SOLUTION FOR PERFUSION
     Route: 041
     Dates: start: 20190506, end: 20190617
  8. CORDARONE [Suspect]
     Active Substance: AMIODARONE HYDROCHLORIDE
     Indication: ATRIAL FIBRILLATION
     Dosage: 200 MG/D, ONLY ON 13-JUN-2019; FORMULATION: COATED TABLET
     Route: 048
     Dates: start: 20190613, end: 20190619
  9. PANTOPRAZOLE [Concomitant]
     Active Substance: PANTOPRAZOLE
     Dosage: 40 MILLIGRAM

REACTIONS (1)
  - Interstitial lung disease [Recovering/Resolving]

NARRATIVE: CASE EVENT DATE: 20190615
